FAERS Safety Report 21623502 (Version 6)
Quarter: 2024Q4

REPORT INFORMATION
  Report Type: Spontaneous
  Country: US (occurrence: US)
  Receive Date: 20221121
  Receipt Date: 20241223
  Transmission Date: 20250114
  Serious: Yes (Other)
  Sender: PFIZER
  Company Number: US-PFIZER INC-PV202200107765

PATIENT
  Age: 74 Year
  Sex: Male

DRUGS (3)
  1. VYNDAMAX [Interacting]
     Active Substance: TAFAMIDIS
     Indication: Amyloidosis
     Dosage: ONE 61 MG TAFAMIDIS CAPSULE ORALLY ONCE DAILY
     Route: 048
  2. CRESTOR [Interacting]
     Active Substance: ROSUVASTATIN CALCIUM
     Dosage: UNK
  3. NITROGLYCERIN ACC [Concomitant]
     Indication: Cardiac disorder
     Dosage: UNK
     Dates: start: 2023

REACTIONS (2)
  - Nephrolithiasis [Unknown]
  - Drug interaction [Unknown]
